FAERS Safety Report 8208676-8 (Version None)
Quarter: 2012Q1

REPORT INFORMATION
  Report Type: 
  Country: None (occurrence: None)
  Receive Date: 20120314
  Receipt Date: 20120307
  Transmission Date: 20120608
  Serious: No
  Sender: FDA-Public Use
  Company Number: US-BAYER-2012-023940

PATIENT
  Age: 72 Year
  Sex: Male
  Weight: 113 kg

DRUGS (14)
  1. NIFEDIPINE [Concomitant]
  2. NEXIUM [Concomitant]
  3. NAPROXEN (ALEVE) [Suspect]
     Dosage: 2 U, QD
     Route: 048
     Dates: start: 20120204
  4. BENICAR [Concomitant]
  5. GLIPIZIDE [Concomitant]
  6. STOOL SOFTENER [Concomitant]
  7. L-ARGININE HCL [Concomitant]
  8. FUROSEMIDE [Concomitant]
  9. FIBER [Concomitant]
  10. MULTI-VITAMINS [Concomitant]
  11. B COMPLEX [B3,B6,B2,B1 HCL] [Concomitant]
  12. DIOVAN [Concomitant]
  13. LOVAZA [Concomitant]
  14. ALEVE (CAPLET) [Suspect]
     Dosage: 2 U, QD
     Route: 048
     Dates: start: 20110301, end: 20120203

REACTIONS (1)
  - FLUID RETENTION [None]
